FAERS Safety Report 10950013 (Version 1)
Quarter: 2015Q1

REPORT INFORMATION
  Report Type: Report from Study
  Country: US (occurrence: US)
  Receive Date: 20150324
  Receipt Date: 20150324
  Transmission Date: 20150721
  Serious: No
  Sender: FDA-Public Use
  Company Number: US-EXELIXIS-CABO-14005012

PATIENT
  Sex: Male

DRUGS (3)
  1. CABOZANTINIB [Suspect]
     Active Substance: CABOZANTINIB
     Dosage: 120 MG, QD
     Route: 048
     Dates: start: 20141108, end: 20141205
  2. ENOXAPARIN [Concomitant]
     Active Substance: ENOXAPARIN
  3. CABOZANTINIB [Suspect]
     Active Substance: CABOZANTINIB
     Indication: METASTASES TO LIVER
     Dosage: 60 MG, QD
     Route: 048
     Dates: start: 20141011, end: 20141106

REACTIONS (2)
  - Unevaluable event [Unknown]
  - Off label use [Unknown]
